FAERS Safety Report 12409091 (Version 5)
Quarter: 2018Q1

REPORT INFORMATION
  Report Type: Spontaneous
  Country: US (occurrence: US)
  Receive Date: 20160526
  Receipt Date: 20180123
  Transmission Date: 20180508
  Serious: Yes (Hospitalization, Other)
  Sender: FDA-Public Use
  Company Number: US-ASTRAZENECA-2016SE56044

PATIENT
  Age: 22398 Day
  Sex: Female
  Weight: 72.6 kg

DRUGS (36)
  1. FORXIGA [Suspect]
     Active Substance: DAPAGLIFLOZIN
     Indication: DIABETES MELLITUS
     Dosage: 5.0MG UNKNOWN
     Route: 048
     Dates: start: 20150626
  2. INVOKANA [Suspect]
     Active Substance: CANAGLIFLOZIN
     Indication: DIABETES MELLITUS
     Dosage: 300.0MG UNKNOWN
     Route: 065
     Dates: start: 201503
  3. VITAMIN B12 [Concomitant]
     Active Substance: CYANOCOBALAMIN
     Indication: MEDICAL DIET
     Dosage: 500.0UG UNKNOWN
     Dates: start: 20111121
  4. MULTIVITAMIN [Concomitant]
     Active Substance: VITAMINS
     Indication: MEDICAL DIET
     Dosage: 10.0MG UNKNOWN
     Dates: start: 20060926
  5. ACYCLOVIR. [Concomitant]
     Active Substance: ACYCLOVIR
     Indication: DIABETES MELLITUS
     Dosage: 800.0MG UNKNOWN
     Dates: start: 20131127
  6. DICLOFENAC SODIUM. [Concomitant]
     Active Substance: DICLOFENAC SODIUM
     Dosage: 100.0MG UNKNOWN
     Dates: start: 20090910
  7. K-PHOS NEUTRAL [Concomitant]
     Active Substance: POTASSIUM PHOSPHATE\SODIUM PHOSPHATE
     Indication: MEDICAL DIET
     Dosage: 155-852-130MG; AS EARLY AS
     Dates: start: 20150626
  8. LEVOTHYROXINE. [Concomitant]
     Active Substance: LEVOTHYROXINE
     Indication: THYROID DISORDER
     Dosage: 0.5MG UNKNOWN
     Dates: start: 20110926
  9. LEVEMIR [Concomitant]
     Active Substance: INSULIN DETEMIR
     Indication: DIABETES MELLITUS
     Dates: start: 20150625
  10. CIPROFLOXACIN. [Concomitant]
     Active Substance: CIPROFLOXACIN
     Dosage: 500.0MG UNKNOWN
     Dates: start: 20140611
  11. XIGDUO XR [Suspect]
     Active Substance: DAPAGLIFLOZIN PROPANEDIOL\METFORMIN HYDROCHLORIDE
     Indication: DIABETES MELLITUS
     Dosage: 5 MG/1000 MG
     Route: 048
     Dates: start: 20150501, end: 20150709
  12. XIGDUO XR [Suspect]
     Active Substance: DAPAGLIFLOZIN PROPANEDIOL\METFORMIN HYDROCHLORIDE
     Indication: DIABETES MELLITUS
     Dosage: 5 MG/1000 MG, TWO TABLETS DAILY
     Route: 048
     Dates: start: 20150501
  13. CYCLOBENZAPRINE HYDROCHLORIDE. [Concomitant]
     Active Substance: CYCLOBENZAPRINE HYDROCHLORIDE
     Dosage: 10.0MG UNKNOWN
     Dates: start: 20120917
  14. FLUTICASONE PROPIONATE. [Concomitant]
     Active Substance: FLUTICASONE PROPIONATE
     Dosage: 50.0UG UNKNOWN
     Dates: start: 20090504
  15. VITAMIN D [Concomitant]
     Active Substance: CHOLECALCIFEROL
     Indication: MEDICAL DIET
     Dosage: 200.0IU UNKNOWN
     Dates: start: 20140318
  16. NOVOLOG [Concomitant]
     Active Substance: INSULIN ASPART
     Indication: DIABETES MELLITUS
     Dates: start: 201506
  17. NEURONTIN [Concomitant]
     Active Substance: GABAPENTIN
     Indication: PAIN IN EXTREMITY
     Dates: start: 20110829
  18. CYMBALTA [Concomitant]
     Active Substance: DULOXETINE HYDROCHLORIDE
     Indication: PAIN
     Dosage: 10.0MG UNKNOWN
     Dates: start: 20060926
  19. LYRICA [Concomitant]
     Active Substance: PREGABALIN
     Indication: PAIN IN EXTREMITY
     Dosage: 50.0MG UNKNOWN
     Dates: start: 20131203
  20. TRESIBA [Concomitant]
     Active Substance: INSULIN DEGLUDEC
     Indication: DIABETES MELLITUS
     Dosage: 19.0IU UNKNOWN
     Dates: start: 201506
  21. NAPROXEN. [Concomitant]
     Active Substance: NAPROXEN
     Dosage: 250.0MG UNKNOWN
     Route: 048
     Dates: start: 20140611
  22. MELOXICAM. [Concomitant]
     Active Substance: MELOXICAM
     Dosage: 7.5MG UNKNOWN
     Dates: start: 20090504
  23. VITAMIN B-6 [Concomitant]
     Active Substance: PYRIDOXINE
     Indication: MEDICAL DIET
     Dosage: 100.0MG UNKNOWN
     Dates: start: 20061230
  24. HYDROCODONE/ACETAMINOPHEN [Concomitant]
     Active Substance: ACETAMINOPHEN\HYDROCODONE
     Dosage: 5-325
     Dates: start: 20140611
  25. AZITHROMYCIN ANHYDROUS. [Concomitant]
     Active Substance: AZITHROMYCIN ANHYDROUS
     Dosage: 500.0MG UNKNOWN
     Dates: start: 20140108
  26. IBUPROFEN. [Concomitant]
     Active Substance: IBUPROFEN
     Dosage: 200.0MG UNKNOWN
     Dates: start: 20111227
  27. NEURONTIN [Concomitant]
     Active Substance: GABAPENTIN
     Indication: ARTHRALGIA
     Dates: start: 20110829
  28. ALPRAZOLAM. [Concomitant]
     Active Substance: ALPRAZOLAM
     Dosage: 0.5MG UNKNOWN
     Dates: start: 20140611
  29. SULFAMETHOXAZOLE/TRIMETHOPRIM [Concomitant]
     Active Substance: SULFAMETHOXAZOLE\TRIMETHOPRIM
     Dosage: 800/160MG
     Dates: start: 20130506
  30. PROPRANOLOL HYDROCHLORIDE. [Concomitant]
     Active Substance: PROPRANOLOL HYDROCHLORIDE
     Dosage: 60.0MG UNKNOWN
     Dates: start: 20081229
  31. ATORVASTATIN [Concomitant]
     Active Substance: ATORVASTATIN
     Indication: BLOOD CHOLESTEROL INCREASED
     Dosage: 20-40 MG
     Dates: start: 20150528
  32. CALCIUM [Concomitant]
     Active Substance: CALCIUM
     Indication: MEDICAL DIET
     Dosage: 600.0MG UNKNOWN
     Dates: start: 20060926
  33. FORXIGA [Suspect]
     Active Substance: DAPAGLIFLOZIN
     Indication: DIABETES MELLITUS
     Dosage: 5.0MG UNKNOWN
     Route: 048
     Dates: start: 20150625, end: 20150726
  34. FLUCONAZOLE. [Concomitant]
     Active Substance: FLUCONAZOLE
     Indication: URINARY TRACT INFECTION
     Dosage: 150.0MG UNKNOWN
     Dates: start: 20150413
  35. METFORMIN HYDROCHLORIDE. [Concomitant]
     Active Substance: METFORMIN HYDROCHLORIDE
     Indication: DIABETES MELLITUS
     Dosage: 500.0MG UNKNOWN
     Dates: start: 20150330
  36. GLUCOSAMINE [Concomitant]
     Active Substance: GLUCOSAMINE
     Indication: ARTHRALGIA
     Dosage: 500.0MG UNKNOWN
     Dates: start: 20090910

REACTIONS (7)
  - Diabetic ketoacidosis [Unknown]
  - Metabolic acidosis [Unknown]
  - Renal failure [Unknown]
  - Acute kidney injury [Recovered/Resolved]
  - Hepatic enzyme increased [Unknown]
  - Lactic acidosis [Unknown]
  - Renal impairment [Unknown]

NARRATIVE: CASE EVENT DATE: 20150622
